FAERS Safety Report 23646880 (Version 1)
Quarter: 2024Q1

REPORT INFORMATION
  Report Type: Spontaneous
  Country: US (occurrence: US)
  Receive Date: 20240319
  Receipt Date: 20240319
  Transmission Date: 20240410
  Serious: Yes (Hospitalization, Other)
  Sender: FDA-Public Use
  Company Number: US-MLMSERVICE-20240228-4855425-1

PATIENT

DRUGS (4)
  1. WARFARIN [Interacting]
     Active Substance: WARFARIN
     Indication: Anticoagulant therapy
     Dosage: UNK
     Route: 065
  2. LINEZOLID [Interacting]
     Active Substance: LINEZOLID
     Indication: Localised infection
     Dosage: 600 MILLIGRAM, BID
     Route: 042
  3. LINEZOLID [Interacting]
     Active Substance: LINEZOLID
     Indication: Cellulitis staphylococcal
  4. INSULIN NOS [Concomitant]
     Active Substance: INSULIN NOS
     Indication: Diabetes mellitus
     Dosage: UNK
     Route: 065

REACTIONS (9)
  - Hypotension [Recovering/Resolving]
  - Drug interaction [Recovering/Resolving]
  - Hypoglycaemia [Recovered/Resolved]
  - Thrombocytopenia [Recovered/Resolved]
  - Lactic acidosis [Recovering/Resolving]
  - Shock [Recovered/Resolved]
  - Hypercoagulation [Recovering/Resolving]
  - Hypertransaminasaemia [Recovered/Resolved]
  - Anticoagulation drug level above therapeutic [Recovering/Resolving]
